FAERS Safety Report 9683109 (Version 1)
Quarter: 2013Q4

REPORT INFORMATION
  Report Type: Spontaneous
  Country: US (occurrence: US)
  Receive Date: 20131112
  Receipt Date: 20131112
  Transmission Date: 20140711
  Serious: No
  Sender: FDA-Public Use
  Company Number: US-PFIZER INC-2013318164

PATIENT
  Age: 46 Year
  Sex: Female

DRUGS (8)
  1. GEODON [Suspect]
     Dosage: UNK
  2. HYDROCHLOROTHIAZIDE [Suspect]
     Dosage: UNK
  3. METFORMIN HCL [Suspect]
     Dosage: UNK
  4. ABILIFY [Suspect]
     Dosage: UNK
  5. AUGMENTIN [Suspect]
     Dosage: UNK
  6. CEPHALEXIN [Suspect]
     Dosage: UNK
  7. LAMICTAL [Suspect]
     Dosage: UNK
  8. IODINE [Suspect]
     Dosage: UNK

REACTIONS (1)
  - Drug hypersensitivity [Unknown]
